FAERS Safety Report 12524825 (Version 2)
Quarter: 2016Q3

REPORT INFORMATION
  Report Type: Spontaneous
  Country: TW (occurrence: TW)
  Receive Date: 20160704
  Receipt Date: 20160712
  Transmission Date: 20161109
  Serious: Yes (Death, Other)
  Sender: FDA-Public Use
  Company Number: TW-PFIZER INC-2016323013

PATIENT
  Age: 63 Year
  Sex: Female

DRUGS (8)
  1. TEICOPLANIN [Concomitant]
     Active Substance: TEICOPLANIN
     Dosage: UNK
     Dates: start: 20141114, end: 20141210
  2. SOLU-CORTEF [Concomitant]
     Active Substance: HYDROCORTISONE SODIUM SUCCINATE
     Dosage: 1PC, 2X/DAY
     Dates: start: 20141120
  3. CASPOFUNGIN [Concomitant]
     Active Substance: CASPOFUNGIN
     Indication: ASPERGILLUS INFECTION
     Dosage: UNK
     Dates: start: 20141212, end: 20141216
  4. SOLU-CORTEF [Concomitant]
     Active Substance: HYDROCORTISONE SODIUM SUCCINATE
     Dosage: 0.5PC, 2X/DAY
     Dates: end: 20141212
  5. MEROPENEM. [Concomitant]
     Active Substance: MEROPENEM
     Dosage: UNK
     Dates: start: 20141207, end: 20141216
  6. VORICONAZOLE. [Suspect]
     Active Substance: VORICONAZOLE
     Indication: ASPERGILLUS INFECTION
     Dosage: UNK
     Dates: start: 20141208, end: 20141216
  7. AMPHOTERICIN-B [Concomitant]
     Active Substance: AMPHOTERICIN B
     Indication: ASPERGILLUS INFECTION
     Dosage: UNK
     Route: 055
     Dates: start: 20141213, end: 20141216
  8. LEVOFLOXACIN. [Concomitant]
     Active Substance: LEVOFLOXACIN
     Dosage: UNK
     Dates: start: 20141201, end: 20141216

REACTIONS (5)
  - Pneumocystis jirovecii pneumonia [Unknown]
  - Hypoxia [Fatal]
  - Condition aggravated [Unknown]
  - Septic shock [Unknown]
  - Bronchopulmonary aspergillosis [Unknown]
